FAERS Safety Report 4369938-8 (Version None)
Quarter: 2004Q2

REPORT INFORMATION
  Report Type: 
  Country: None (occurrence: None)
  Receive Date: 20040525
  Receipt Date: 20040507
  Transmission Date: 20050107
  Serious: Yes (Hospitalization)
  Sender: FDA-Public Use
  Company Number: DSA_24389_2004

PATIENT
  Age: 77 Year
  Sex: Female

DRUGS (11)
  1. ENALAPRIL MALEATE [Suspect]
     Indication: HYPERTENSION
     Dosage: 2.5 MG BID PO
     Route: 048
     Dates: start: 20000101
  2. POTASSIUM BICARBONATE/ POTASSIUM CITRATE (KALINOR) [Suspect]
     Indication: MINERAL SUPPLEMENTATION
     Dosage: 40 MM BID PO
     Route: 048
     Dates: start: 20030724, end: 20030728
  3. SPIRONOLACTONE [Suspect]
     Indication: HYPERTENSION
     Dosage: 25 MG QD PO
     Route: 048
     Dates: start: 20010101, end: 20030728
  4. AMIODARONE HYDROCHLORIDE [Concomitant]
  5. XIPAMIDE (AQUAPHOR) [Concomitant]
  6. DIGITOXIN TAB [Concomitant]
  7. EUITHYROX [Concomitant]
  8. FALITHROM [Concomitant]
  9. LOCOL [Concomitant]
  10. THEOPHYLLINE [Concomitant]
  11. TORSEMIDE [Concomitant]

REACTIONS (5)
  - BLOOD SODIUM DECREASED [None]
  - DEHYDRATION [None]
  - DRUG INTERACTION [None]
  - GASTROENTERITIS [None]
  - HYPERKALAEMIA [None]
